FAERS Safety Report 9426682 (Version 1)
Quarter: 2013Q3

REPORT INFORMATION
  Report Type: Spontaneous
  Country: US (occurrence: US)
  Receive Date: 20130730
  Receipt Date: 20130730
  Transmission Date: 20140515
  Serious: No
  Sender: FDA-Public Use
  Company Number: US-SANOFI-AVENTIS-2012SA055443

PATIENT
  Age: 48 Year
  Sex: Male

DRUGS (1)
  1. AMBIEN [Suspect]
     Route: 048
     Dates: end: 2012

REACTIONS (3)
  - Unevaluable event [Unknown]
  - Abnormal sleep-related event [Unknown]
  - Amnesia [Unknown]
